FAERS Safety Report 5373403-9 (Version None)
Quarter: 2007Q2

REPORT INFORMATION
  Report Type: 
  Country: None (occurrence: None)
  Receive Date: 20070628
  Receipt Date: 20070522
  Transmission Date: 20071010
  Serious: No
  Sender: FDA-Public Use
  Company Number: US-BAUSCH-2007BL001671

PATIENT
  Age: 66 Year
  Sex: Male

DRUGS (2)
  1. ALAWAY (KETOTIFEN FUMARATE OPHTHALMIC SOLUTION) [Suspect]
     Indication: EYE ALLERGY
     Route: 047
     Dates: start: 20070501
  2. ^A LOT OF UNSPECIFIED MEDICATIONS^ [Concomitant]

REACTIONS (1)
  - DIZZINESS [None]
